FAERS Safety Report 5903194-1 (Version None)
Quarter: 2008Q3

REPORT INFORMATION
  Report Type: 
  Country: None (occurrence: None)
  Receive Date: 20080929
  Receipt Date: 20080929
  Transmission Date: 20090109
  Serious: Yes (Hospitalization)
  Sender: FDA-Public Use
  Company Number: None

PATIENT
  Sex: Male
  Weight: 63.3 kg

DRUGS (4)
  1. ZOLOFT [Suspect]
     Indication: DEPRESSION
     Dosage: 50 MG DAILY ORAL
     Route: 048
     Dates: end: 20080920
  2. REMERON [Suspect]
     Indication: DEPRESSION
     Dosage: 15 MG DAILY ORAL
     Route: 048
     Dates: start: 20080917
  3. MEGACE [Suspect]
     Indication: DECREASED APPETITE
     Dosage: 40 MG FOUR TIMES ORAL
     Route: 048
     Dates: start: 20080812
  4. IRESSA [Suspect]
     Indication: OESOPHAGEAL CARCINOMA
     Dosage: 250 MG DAILY ORAL
     Route: 048
     Dates: start: 20080819, end: 20080923

REACTIONS (4)
  - DECREASED APPETITE [None]
  - DEPRESSION [None]
  - DISORIENTATION [None]
  - HALLUCINATION [None]
